FAERS Safety Report 18677249 (Version 1)
Quarter: 2020Q4

REPORT INFORMATION
  Report Type: Spontaneous
  Country: ES (occurrence: ES)
  Receive Date: 20201229
  Receipt Date: 20201229
  Transmission Date: 20210114
  Serious: Yes (Other)
  Sender: FDA-Public Use
  Company Number: ES-TEVA-2020-ES-1862767

PATIENT
  Sex: Male

DRUGS (1)
  1. TRAMADOL (2389A) [Suspect]
     Active Substance: TRAMADOL
     Dosage: 300 MG
     Route: 048
     Dates: start: 202012

REACTIONS (2)
  - Disorientation [Unknown]
  - Depressed level of consciousness [Unknown]

NARRATIVE: CASE EVENT DATE: 202012
